FAERS Safety Report 23238494 (Version 1)
Quarter: 2023Q4

REPORT INFORMATION
  Report Type: Spontaneous
  Country: ES (occurrence: ES)
  Receive Date: 20231129
  Receipt Date: 20231129
  Transmission Date: 20240110
  Serious: Yes (Hospitalization)
  Sender: FDA-Public Use
  Company Number: ES-BoehringerIngelheim-2023-BI-275106

PATIENT
  Age: 70 Year
  Sex: Male

DRUGS (2)
  1. NINTEDANIB [Suspect]
     Active Substance: NINTEDANIB
     Indication: Idiopathic pulmonary fibrosis
     Dosage: 150 MG TWICE A DAY
     Dates: end: 202311
  2. NINTEDANIB [Suspect]
     Active Substance: NINTEDANIB
     Dosage: NINTEDANIB WITHDRAWN DURING HOSPITALIZATION AND RESUMED UPON DISCHARGE
     Dates: start: 202311

REACTIONS (1)
  - Cerebral haemorrhage [Recovered/Resolved]

NARRATIVE: CASE EVENT DATE: 20231101
